FAERS Safety Report 4587063-8 (Version None)
Quarter: 2005Q1

REPORT INFORMATION
  Report Type: 
  Country: None (occurrence: None)
  Receive Date: 20050214
  Receipt Date: 20050207
  Transmission Date: 20050727
  Serious: Yes (Other)
  Sender: FDA-Public Use
  Company Number: OMPQ-PR-0502L-0253

PATIENT
  Age: 18 Month

DRUGS (4)
  1. OMNIPAQUE 140 [Suspect]
     Indication: DRUG USE FOR UNKNOWN INDICATION
     Dosage: SINGLE DOSE, I. A.
     Route: 013
  2. CHLORPROMAZINE [Concomitant]
  3. PROMETHAZINE [Concomitant]
  4. MEPERIDINE [Concomitant]

REACTIONS (2)
  - SKIN EXFOLIATION [None]
  - URTICARIA GENERALISED [None]
